FAERS Safety Report 9643316 (Version 2)
Quarter: 2014Q1

REPORT INFORMATION
  Report Type: Spontaneous
  Country: US (occurrence: US)
  Receive Date: 20131024
  Receipt Date: 20140130
  Transmission Date: 20141002
  Serious: Yes (Other)
  Sender: FDA-Public Use
  Company Number: US-PFIZER INC-2013300871

PATIENT
  Age: 20 Year
  Sex: Male
  Weight: 79.1 kg

DRUGS (4)
  1. LYRICA [Suspect]
     Indication: CONVULSION
     Dosage: 300 MG, 2X/DAY
     Route: 048
  2. LAMICTAL [Suspect]
     Indication: CONVULSION
     Dosage: 300 MG, 2X/DAY
     Route: 048
  3. CATAPRES [Concomitant]
     Dosage: 0.2 MG, 1X/DAY (EVERY EVENING AT BEDTIME)
     Route: 048
  4. ADDERALL [Concomitant]
     Indication: ATTENTION DEFICIT/HYPERACTIVITY DISORDER
     Dosage: 30 MG, DAILY
     Route: 048

REACTIONS (4)
  - Craniocerebral injury [Unknown]
  - Complex partial seizures [Unknown]
  - Loss of consciousness [Unknown]
  - Stress [Unknown]
